FAERS Safety Report 7606397-3 (Version None)
Quarter: 2011Q3

REPORT INFORMATION
  Report Type: 
  Country: None (occurrence: None)
  Receive Date: 20110713
  Receipt Date: 20110712
  Transmission Date: 20111222
  Serious: Yes (Other)
  Sender: FDA-Public Use
  Company Number: DE-PFIZER INC-2011061075

PATIENT
  Age: 73 Year
  Sex: Female
  Weight: 81 kg

DRUGS (2)
  1. ARCOXIA [Concomitant]
     Dosage: DURATION WAS ^WEEK-LONG^ PRIOR TO START OF LYRICA THERAPY
  2. LYRICA [Suspect]
     Indication: BACK PAIN
     Dosage: 150 MG, UNK
     Route: 048
     Dates: start: 20110223, end: 20110301

REACTIONS (4)
  - DYSPNOEA EXERTIONAL [None]
  - ANAEMIA [None]
  - PULMONARY CONGESTION [None]
  - OEDEMA PERIPHERAL [None]
